FAERS Safety Report 16068133 (Version 2)
Quarter: 2019Q1

REPORT INFORMATION
  Report Type: Spontaneous
  Country: AU (occurrence: AU)
  Receive Date: 20190313
  Receipt Date: 20190328
  Transmission Date: 20190418
  Serious: Yes (Other)
  Sender: FDA-Public Use
  Company Number: AU-SEATTLE GENETICS-2019SGN00696

PATIENT
  Age: 70 Year
  Sex: Male

DRUGS (1)
  1. ADCETRIS [Suspect]
     Active Substance: BRENTUXIMAB VEDOTIN
     Indication: MYCOSIS FUNGOIDES
     Dosage: UNK
     Route: 065
     Dates: start: 2015, end: 2016

REACTIONS (8)
  - Neuropathy peripheral [Recovering/Resolving]
  - Waldenstrom^s macroglobulinaemia [Recovering/Resolving]
  - Hair colour changes [Recovering/Resolving]
  - Balance disorder [Recovering/Resolving]
  - Irritable bowel syndrome [Recovering/Resolving]
  - Disorientation [Recovering/Resolving]
  - Lacrimation increased [Recovering/Resolving]
  - Fine motor skill dysfunction [Recovering/Resolving]

NARRATIVE: CASE EVENT DATE: 201807
